FAERS Safety Report 15259827 (Version 2)
Quarter: 2018Q4

REPORT INFORMATION
  Report Type: Spontaneous
  Country: US (occurrence: US)
  Receive Date: 20180809
  Receipt Date: 20181212
  Transmission Date: 20190204
  Serious: Yes (Other)
  Sender: FDA-Public Use
  Company Number: US-SA-2018SA211712

PATIENT
  Age: 56 Year
  Sex: Female
  Weight: 66.6 kg

DRUGS (9)
  1. EMLA [LIDOCAINE;PRILOCAINE] [Concomitant]
     Dosage: UNK UNK, UNK
     Route: 065
     Dates: start: 20130806
  2. ONDANSETRON [Concomitant]
     Active Substance: ONDANSETRON
     Dosage: UNK UNK, UNK
     Route: 065
     Dates: start: 20130806
  3. DECADRON [DEXAMETHASONE] [Concomitant]
     Dosage: UNK UNK, UNK
     Route: 065
  4. PROCHLORPERAZINE. [Concomitant]
     Active Substance: PROCHLORPERAZINE
     Dosage: UNK UNK, UNK
     Route: 065
     Dates: start: 20130806
  5. TAXOTERE [Suspect]
     Active Substance: DOCETAXEL
     Indication: BREAST CANCER FEMALE
     Dosage: UNK UNK, UNK
     Route: 042
     Dates: start: 20130919, end: 20130919
  6. DILAUDID [Concomitant]
     Active Substance: HYDROMORPHONE HYDROCHLORIDE
     Dosage: UNK UNK, UNK
     Route: 065
  7. KEPPRA [Concomitant]
     Active Substance: LEVETIRACETAM
     Dosage: UNK UNK, UNK
     Route: 065
  8. TAXOL [Concomitant]
     Active Substance: PACLITAXEL
     Dosage: UNK UNK, UNK
     Route: 065
  9. TAXOTERE [Suspect]
     Active Substance: DOCETAXEL
     Dosage: UNK
     Route: 042
     Dates: start: 20131125, end: 20131125

REACTIONS (3)
  - Emotional distress [Unknown]
  - Alopecia [Not Recovered/Not Resolved]
  - Anxiety [Unknown]

NARRATIVE: CASE EVENT DATE: 201405
